FAERS Safety Report 10098692 (Version 1)
Quarter: 2014Q2

REPORT INFORMATION
  Report Type: Spontaneous
  Country: FR (occurrence: FR)
  Receive Date: 20140423
  Receipt Date: 20140423
  Transmission Date: 20141212
  Serious: Yes (Hospitalization)
  Sender: FDA-Public Use
  Company Number: FR-JNJFOC-20140411937

PATIENT
  Age: 74 Year
  Sex: Female

DRUGS (7)
  1. XARELTO [Suspect]
     Indication: CEREBROVASCULAR ACCIDENT PROPHYLAXIS
     Route: 048
     Dates: start: 201308, end: 20140119
  2. XARELTO [Suspect]
     Indication: ATRIAL FLUTTER
     Route: 048
     Dates: start: 201308, end: 20140119
  3. UVEDOSE [Suspect]
     Indication: VITAMIN D DEFICIENCY
     Route: 048
     Dates: start: 201311
  4. SPECIAFOLDINE [Suspect]
     Indication: ANAEMIA
     Route: 048
     Dates: start: 2013
  5. CARDENSIEL [Suspect]
     Indication: ATRIAL FLUTTER
     Route: 048
     Dates: start: 201303
  6. INEXIUM [Suspect]
     Indication: PRODUCT USED FOR UNKNOWN INDICATION
     Route: 048
  7. IXPRIM [Suspect]
     Indication: PAIN
     Route: 048

REACTIONS (1)
  - Ischaemic stroke [Recovered/Resolved with Sequelae]
